FAERS Safety Report 10532590 (Version 2)
Quarter: 2014Q4

REPORT INFORMATION
  Report Type: Spontaneous
  Country: US (occurrence: US)
  Receive Date: 20141021
  Receipt Date: 20141021
  Transmission Date: 20150529
  Serious: Yes (Death)
  Sender: FDA-Public Use
  Company Number: US-MUNDIPHARMA DS AND PHARMACOVIGILANCE-USA-2014-0117677

PATIENT
  Age: 18 Year
  Sex: Female

DRUGS (1)
  1. OXYCONTIN [Suspect]
     Active Substance: OXYCODONE HYDROCHLORIDE
     Indication: DRUG ABUSE
     Dosage: UNKNOWN

REACTIONS (3)
  - Respiratory depression [Fatal]
  - Overdose [Fatal]
  - Drug abuse [Fatal]

NARRATIVE: CASE EVENT DATE: 2006
